FAERS Safety Report 15660709 (Version 1)
Quarter: 2018Q4

REPORT INFORMATION
  Report Type: Spontaneous
  Country: US (occurrence: US)
  Receive Date: 20181119
  Receipt Date: 20181119
  Transmission Date: 20190205
  Serious: Yes (Other)
  Sender: FDA-Public Use
  Company Number: None

PATIENT
  Age: 59 Year
  Sex: Female
  Weight: 56.7 kg

DRUGS (3)
  1. RHOPRESSA [Suspect]
     Active Substance: NETARSUDIL MESYLATE
     Indication: GLAUCOMA
     Dates: start: 20181002, end: 20181015
  2. LAMICTAL [Concomitant]
     Active Substance: LAMOTRIGINE
  3. SEROQUEL [Concomitant]
     Active Substance: QUETIAPINE FUMARATE

REACTIONS (8)
  - Migraine [None]
  - Self-medication [None]
  - Dizziness [None]
  - Photophobia [None]
  - Eye pruritus [None]
  - Ear pruritus [None]
  - Pruritus [None]
  - Drug effect delayed [None]

NARRATIVE: CASE EVENT DATE: 20181012
